FAERS Safety Report 24290034 (Version 1)
Quarter: 2024Q3

REPORT INFORMATION
  Report Type: Spontaneous
  Country: JP (occurrence: JP)
  Receive Date: 20240906
  Receipt Date: 20240906
  Transmission Date: 20241017
  Serious: Yes (Life-Threatening, Hospitalization, Other)
  Sender: CADILA
  Company Number: JP-CPL-004565

PATIENT
  Age: 42 Year
  Sex: Female

DRUGS (4)
  1. OLANZAPINE [Suspect]
     Active Substance: OLANZAPINE
     Indication: Depression
     Dosage: 20 TABLETS OF 2.5 MG EACH
  2. NITRAZEPAM [Suspect]
     Active Substance: NITRAZEPAM
     Indication: Depression
     Dosage: 120 TABLETS OF 5 MG EACH
  3. VALPROIC ACID [Suspect]
     Active Substance: VALPROIC ACID
     Indication: Depression
     Dosage: 178 TABLETS OF 200 MG EACH
  4. FLUNITRAZEPAM [Concomitant]
     Active Substance: FLUNITRAZEPAM
     Indication: Depression
     Dosage: TWO TABLETS

REACTIONS (9)
  - Overdose [Unknown]
  - Somnolence [Unknown]
  - Unresponsive to stimuli [Unknown]
  - Hypoxia [Unknown]
  - Respiratory acidosis [Unknown]
  - Hypotension [Unknown]
  - Altered state of consciousness [Unknown]
  - Cardiogenic shock [Unknown]
  - Pneumonia aspiration [Unknown]
